FAERS Safety Report 4698118-1 (Version None)
Quarter: 2005Q2

REPORT INFORMATION
  Report Type: 
  Country: None (occurrence: None)
  Receive Date: 20050126
  Receipt Date: 20050126
  Transmission Date: 20051028
  Serious: No
  Sender: FDA-Public Use
  Company Number: None

PATIENT
  Sex: Female
  Weight: 63.05 kg

DRUGS (2)
  1. CAPOTEN [Suspect]
     Indication: CARDIAC FAILURE CONGESTIVE
     Dosage: 12.5 TID  LIFETIME
  2. CAPOTEN [Suspect]
     Indication: ISCHAEMIC CARDIOMYOPATHY
     Dosage: 12.5 TID  LIFETIME

REACTIONS (1)
  - HEADACHE [None]
